FAERS Safety Report 9009125 (Version 2)
Quarter: 2013Q2

REPORT INFORMATION
  Report Type: Spontaneous
  Country: US (occurrence: US)
  Receive Date: 20130111
  Receipt Date: 20130412
  Transmission Date: 20140414
  Serious: No
  Sender: FDA-Public Use
  Company Number: US-GLAXOSMITHKLINE-A1002910A

PATIENT
  Age: 72 Year
  Sex: 0

DRUGS (7)
  1. JALYN [Suspect]
     Indication: PROSTATOMEGALY
     Dates: start: 2011
  2. LIPITOR [Concomitant]
  3. ALBUTEROL [Concomitant]
  4. LEVOTHYROXINE [Concomitant]
  5. KLOR-CON [Concomitant]
  6. METFORMIN [Concomitant]
  7. PRED FORTE [Concomitant]

REACTIONS (3)
  - Dizziness [Recovered/Resolved]
  - Asthenia [Unknown]
  - Product quality issue [Unknown]
